FAERS Safety Report 6110329-7 (Version None)
Quarter: 2009Q1

REPORT INFORMATION
  Report Type: 
  Country: None (occurrence: None)
  Receive Date: 20090310
  Receipt Date: 20090227
  Transmission Date: 20090719
  Serious: Yes (Disabling, Other)
  Sender: FDA-Public Use
  Company Number: US-PFIZER INC-2006049862

PATIENT
  Sex: Female
  Weight: 88 kg

DRUGS (10)
  1. LIPITOR [Interacting]
     Indication: BLOOD CHOLESTEROL INCREASED
     Route: 065
     Dates: start: 20041001, end: 20060201
  2. NEURONTIN [Suspect]
     Indication: ANXIETY
     Route: 065
     Dates: start: 20030801
  3. NEURONTIN [Suspect]
     Indication: NEURALGIA
  4. NEURONTIN [Suspect]
     Indication: NEUROPATHY PERIPHERAL
  5. IBUPROFEN [Suspect]
     Indication: PAIN
     Route: 065
  6. AMITRIPTYLINE [Suspect]
  7. TRICYCLIC ANTIDEPRESSANTS [Suspect]
  8. OPIOIDS [Suspect]
  9. BENICAR [Concomitant]
     Route: 065
  10. KLONOPIN [Concomitant]
     Route: 065

REACTIONS (21)
  - ABASIA [None]
  - ANKLE FRACTURE [None]
  - BLOOD CHOLESTEROL INCREASED [None]
  - DEMYELINATION [None]
  - DRUG INEFFECTIVE [None]
  - DRUG INEFFECTIVE FOR UNAPPROVED INDICATION [None]
  - DRUG INTERACTION [None]
  - FALL [None]
  - GAIT DISTURBANCE [None]
  - MENTAL DISORDER [None]
  - MOTOR DYSFUNCTION [None]
  - MOVEMENT DISORDER [None]
  - MUSCULAR WEAKNESS [None]
  - NEURALGIA [None]
  - NEUROPATHY PERIPHERAL [None]
  - PAIN [None]
  - PAIN IN EXTREMITY [None]
  - SENSORY LOSS [None]
  - TEARFULNESS [None]
  - UNEVALUABLE EVENT [None]
  - WEIGHT INCREASED [None]
